FAERS Safety Report 19450178 (Version 1)
Quarter: 2021Q2

REPORT INFORMATION
  Report Type: Spontaneous
  Country: DE (occurrence: DE)
  Receive Date: 20210622
  Receipt Date: 20210622
  Transmission Date: 20210717
  Serious: Yes (Death, Other)
  Sender: FDA-Public Use
  Company Number: DE-FRESENIUS KABI-FK202106327

PATIENT
  Age: 62 Year
  Sex: Female
  Weight: 69 kg

DRUGS (3)
  1. METAMIZOLE [Concomitant]
     Active Substance: METAMIZOLE
     Indication: ANALGESIC THERAPY
     Route: 065
  2. ROPIVACAINE (MANUFACTURER UNKNOWN) [Suspect]
     Active Substance: ROPIVACAINE
     Indication: VEHICLE SOLUTION USE
     Dosage: 0.2 L BAGS (400 MG/BAG)
     Route: 042
  3. PIRITRAMIDE [Concomitant]
     Active Substance: PIRITRAMIDE
     Indication: ANALGESIC THERAPY
     Route: 065

REACTIONS (3)
  - Toxicity to various agents [Fatal]
  - Product packaging confusion [Unknown]
  - Wrong product administered [Unknown]
